FAERS Safety Report 9439082 (Version 1)
Quarter: 2013Q3

REPORT INFORMATION
  Report Type: Spontaneous
  Country: GB (occurrence: GB)
  Receive Date: 20130802
  Receipt Date: 20130802
  Transmission Date: 20140515
  Serious: Yes (Disabling, Other)
  Sender: FDA-Public Use
  Company Number: GB-WATSON-2013-13540

PATIENT
  Age: 44 Year
  Sex: Female

DRUGS (6)
  1. GABAPENTIN (UNKNOWN) [Suspect]
     Indication: NEURALGIA
     Dosage: 100 MG, TID
     Route: 048
     Dates: start: 20130704
  2. NAPROXEN (UNKNOWN) [Suspect]
     Indication: NEURALGIA
     Dosage: 500 MG, BID
     Route: 048
     Dates: start: 20130601
  3. DOSULEPIN [Suspect]
     Indication: PRODUCT USED FOR UNKNOWN INDICATION
     Dosage: 75 MG, DAILY
     Route: 048
     Dates: start: 20130501
  4. LORATADINE [Concomitant]
     Indication: MULTIPLE ALLERGIES
     Dosage: UNK, UNKNOWN
     Route: 065
  5. VITAMIN B12                        /00056201/ [Concomitant]
     Indication: ROUTINE HEALTH MAINTENANCE
     Dosage: 1000 IU, UNKNOWN
     Route: 065
  6. VALTREX [Concomitant]
     Indication: PRODUCT USED FOR UNKNOWN INDICATION
     Dosage: 500 MG, DAILY
     Route: 065

REACTIONS (12)
  - Depression [Unknown]
  - Hypertension [Unknown]
  - Negative thoughts [Unknown]
  - Nausea [Unknown]
  - Lethargy [Unknown]
  - Malaise [Unknown]
  - Confusional state [Unknown]
  - Amnesia [Unknown]
  - Decreased appetite [Unknown]
  - Vision blurred [Unknown]
  - Chest pain [Unknown]
  - Palpitations [Unknown]
